FAERS Safety Report 10754569 (Version 1)
Quarter: 2015Q1

REPORT INFORMATION
  Report Type: Spontaneous
  Country: US (occurrence: None)
  Receive Date: 20150130
  Receipt Date: 20150130
  Transmission Date: 20150721
  Serious: Yes (Disabling)
  Sender: FDA-Public Use
  Company Number: None

PATIENT
  Age: 1 Year
  Sex: Female
  Weight: 17.24 kg

DRUGS (1)
  1. POLYETHYLENE GLYCOL [Suspect]
     Active Substance: POLYETHYLENE GLYCOLS
     Indication: CONSTIPATION
     Dosage: TWO TABLESPOONS OF POWDER, TWICE DAILY, TAKEN BY MOUTH
     Route: 048
     Dates: start: 20080801, end: 20131231

REACTIONS (24)
  - Anger [None]
  - Bite [None]
  - Anxiety [None]
  - Aggression [None]
  - Mood swings [None]
  - Hyperacusis [None]
  - Photophobia [None]
  - Balance disorder [None]
  - Fall [None]
  - Sleep terror [None]
  - Insomnia [None]
  - Irritability [None]
  - Intentional self-injury [None]
  - Disturbance in attention [None]
  - Obsessive-compulsive disorder [None]
  - Conversion disorder [None]
  - Decreased appetite [None]
  - Head banging [None]
  - Unevaluable event [None]
  - Growth retardation [None]
  - Scratch [None]
  - Motor dysfunction [None]
  - Vision blurred [None]
  - Vertigo [None]
